FAERS Safety Report 9639931 (Version 2)
Quarter: 2014Q2

REPORT INFORMATION
  Report Type: Spontaneous
  Country: CO (occurrence: CO)
  Receive Date: 20131023
  Receipt Date: 20140409
  Transmission Date: 20141212
  Serious: Yes (Other)
  Sender: FDA-Public Use
  Company Number: CO-AMGEN-COLSP2013074724

PATIENT
  Age: 83 Year
  Sex: Male

DRUGS (2)
  1. ENBREL [Suspect]
     Indication: PSORIASIS
     Dosage: 50 MG, WEEKLY
     Route: 058
     Dates: start: 2010
  2. METHOTREXATE [Concomitant]
     Indication: PSORIASIS
     Dosage: 2 TABLETS OF 2.5MG ON MONDAY AND 2 TABLETS OF 2.5MG ON TUESDAY
     Route: 048
     Dates: start: 2009

REACTIONS (3)
  - Fall [Not Recovered/Not Resolved]
  - Hand fracture [Not Recovered/Not Resolved]
  - Psoriasis [Not Recovered/Not Resolved]
